FAERS Safety Report 7544394-7 (Version None)
Quarter: 2011Q2

REPORT INFORMATION
  Report Type: 
  Country: None (occurrence: None)
  Receive Date: 20110613
  Receipt Date: 20080409
  Transmission Date: 20111010
  Serious: Yes (Death, Other)
  Sender: FDA-Public Use
  Company Number: PHNR2007AU01051

PATIENT
  Sex: Female

DRUGS (3)
  1. VALPROATE SODIUM [Concomitant]
     Dosage: 600 MG, BID
  2. VALIUM [Concomitant]
     Dosage: 2 MG, TID
  3. CLOZAPINE [Suspect]
     Indication: SCHIZOPHRENIA
     Dosage: 675 MG, BID
     Route: 048
     Dates: start: 19990201, end: 20080214

REACTIONS (3)
  - BREAST MASS [None]
  - BREAST CANCER [None]
  - TERMINAL STATE [None]
